FAERS Safety Report 6430290-5 (Version None)
Quarter: 2009Q4

REPORT INFORMATION
  Report Type: 
  Country: None (occurrence: None)
  Receive Date: 20091104
  Receipt Date: 20091029
  Transmission Date: 20100525
  Serious: Yes (Hospitalization)
  Sender: FDA-Public Use
  Company Number: 2009AL006884

PATIENT
  Age: 27 Year
  Sex: Female

DRUGS (15)
  1. AMANTADINE HCL [Suspect]
  2. ASPIRIN [Concomitant]
  3. CYCLOSPORINE [Concomitant]
  4. FLUCONAZOLE [Concomitant]
  5. INSULIN [Concomitant]
  6. ISOSORBIDE DINITRATE [Concomitant]
  7. METOPROLOL TARTRATE [Concomitant]
  8. MYCOPHENOLATE MOFETIL [Concomitant]
  9. PANTOPRAZOLE [Concomitant]
  10. PRENISONE [Concomitant]
  11. WARFARIN SODIUM [Concomitant]
  12. ACYCLOVIR [Concomitant]
  13. BUPROPION HCL [Concomitant]
  14. SULFAMETHOXAZOLE AND TRIMETHOPRIM [Concomitant]
  15. METOCLOPRAMIDE [Concomitant]

REACTIONS (15)
  - AGGRESSION [None]
  - AGITATION [None]
  - ATAXIA [None]
  - BLOOD CHLORIDE DECREASED [None]
  - BLOOD CREATININE INCREASED [None]
  - BLOOD GLUCOSE INCREASED [None]
  - BLOOD PRESSURE SYSTOLIC INCREASED [None]
  - BLOOD SODIUM DECREASED [None]
  - CONFUSIONAL STATE [None]
  - DRUG TOXICITY [None]
  - FALL [None]
  - HAEMOGLOBIN DECREASED [None]
  - HALLUCINATION, VISUAL [None]
  - NERVOUS SYSTEM DISORDER [None]
  - TREMOR [None]
